FAERS Safety Report 24934085 (Version 1)
Quarter: 2025Q1

REPORT INFORMATION
  Report Type: Report from Study
  Country: IN (occurrence: IN)
  Receive Date: 20250206
  Receipt Date: 20250206
  Transmission Date: 20250408
  Serious: Yes (Other)
  Sender: ROCHE
  Company Number: IN-ROCHE-10000196529

PATIENT
  Age: 78 Year
  Sex: Male

DRUGS (1)
  1. TECENTRIQ [Suspect]
     Active Substance: ATEZOLIZUMAB
     Indication: Hepatocellular carcinoma
     Route: 040
     Dates: start: 20240208

REACTIONS (8)
  - Tumour rupture [Unknown]
  - Off label use [Unknown]
  - Thyroglossal cyst [Unknown]
  - Carotid arteriosclerosis [Unknown]
  - Prostatomegaly [Unknown]
  - Cystitis [Unknown]
  - Benign neoplasm of thyroid gland [Unknown]
  - Drug ineffective [Unknown]

NARRATIVE: CASE EVENT DATE: 20240706
